FAERS Safety Report 24653179 (Version 6)
Quarter: 2025Q2

REPORT INFORMATION
  Report Type: Spontaneous
  Country: US (occurrence: US)
  Receive Date: 20241122
  Receipt Date: 20250430
  Transmission Date: 20250716
  Serious: Yes (Other)
  Sender: PFIZER
  Company Number: US-PFIZER INC-PV202400150281

PATIENT
  Age: 71 Year
  Sex: Female

DRUGS (2)
  1. TUKYSA [Suspect]
     Active Substance: TUCATINIB
     Indication: Breast cancer female
     Dosage: 150MG; 2 TABLETS TWICE DAILY
     Route: 048
  2. TUKYSA [Suspect]
     Active Substance: TUCATINIB
     Dosage: 50 MG; TAKE FOUR TABLETS BY MOUTH EVERY TWELVE HOURS/50MG; TAKE 4 TABLETS TWICE DAILY
     Route: 048

REACTIONS (5)
  - Breast cancer [Unknown]
  - Metastases to central nervous system [Unknown]
  - Arthralgia [Unknown]
  - Pain in extremity [Unknown]
  - Loss of personal independence in daily activities [Unknown]
